FAERS Safety Report 8255844-5 (Version None)
Quarter: 2012Q2

REPORT INFORMATION
  Report Type: 
  Country: None (occurrence: None)
  Receive Date: 20120403
  Receipt Date: 20120327
  Transmission Date: 20120825
  Serious: Yes (Hospitalization, Other)
  Sender: FDA-Public Use
  Company Number: US-ACTELION-A-NJ2010-41152

PATIENT

DRUGS (1)
  1. TRACLEER [Suspect]
     Indication: PULMONARY ARTERIAL HYPERTENSION
     Dosage: 125 MG, BID
     Route: 048
     Dates: start: 20040506

REACTIONS (9)
  - HIP FRACTURE [None]
  - PULMONARY ARTERIAL HYPERTENSION [None]
  - SYNCOPE [None]
  - CHEST PAIN [None]
  - INFLUENZA [None]
  - DISEASE PROGRESSION [None]
  - NASOPHARYNGITIS [None]
  - DIZZINESS [None]
  - DYSPNOEA [None]
